FAERS Safety Report 9487090 (Version 4)
Quarter: 2014Q3

REPORT INFORMATION
  Report Type: Spontaneous
  Country: US (occurrence: None)
  Receive Date: 20130827
  Receipt Date: 20140813
  Transmission Date: 20150326
  Serious: Yes (Hospitalization, Other)
  Sender: FDA-Public Use
  Company Number: 2013US001995

PATIENT
  Age: 68 Year
  Sex: Female
  Weight: 87 kg

DRUGS (17)
  1. COZAAR [Concomitant]
     Active Substance: LOSARTAN POTASSIUM
  2. ADVAIR HFA [Concomitant]
     Active Substance: FLUTICASONE PROPIONATE\SALMETEROL XINAFOATE
  3. SYNTHROID [Concomitant]
     Active Substance: LEVOTHYROXINE SODIUM
  4. TRIAMCINOLONE [Concomitant]
     Active Substance: TRIAMCINOLONE
  5. ASPIRIN (ASPIRIN) [Concomitant]
     Active Substance: ASPIRIN
  6. LASIX [Concomitant]
     Active Substance: FUROSEMIDE
  7. ZYLOPRIM [Concomitant]
     Active Substance: ALLOPURINOL
  8. ATIVAN [Concomitant]
     Active Substance: LORAZEPAM
  9. ICLUSIG [Suspect]
     Active Substance: PONATINIB
     Indication: CHRONIC MYELOID LEUKAEMIA
     Route: 048
     Dates: start: 20130507, end: 201307
  10. ATROVENT [Concomitant]
     Active Substance: IPRATROPIUM BROMIDE
  11. NATEGLINIDE. [Concomitant]
     Active Substance: NATEGLINIDE
  12. COREG [Concomitant]
     Active Substance: CARVEDILOL
  13. ZETIA [Concomitant]
     Active Substance: EZETIMIBE
  14. DUONEB [Concomitant]
     Active Substance: ALBUTEROL SULFATE\IPRATROPIUM BROMIDE
  15. LOSARTAN  (LOSARTAN) [Concomitant]
     Active Substance: LOSARTAN
  16. MIRALAX [Concomitant]
     Active Substance: POLYETHYLENE GLYCOL 3350
  17. BUMETANIDE. [Concomitant]
     Active Substance: BUMETANIDE

REACTIONS (16)
  - Anxiety [None]
  - Abdominal pain [None]
  - Bladder diverticulum [None]
  - Renal impairment [None]
  - Aortic valve sclerosis [None]
  - Pneumonia [None]
  - Dyspnoea [None]
  - Hyperglycaemia [None]
  - Cardiac failure congestive [None]
  - Fatigue [None]
  - Pulmonary mass [None]
  - Oxygen saturation decreased [None]
  - Ejection fraction decreased [None]
  - Bone pain [None]
  - Asthma [None]
  - Chest pain [None]

NARRATIVE: CASE EVENT DATE: 20130531
